FAERS Safety Report 7059684-4 (Version None)
Quarter: 2010Q4

REPORT INFORMATION
  Report Type: 
  Country: None (occurrence: None)
  Receive Date: 20101025
  Receipt Date: 20101019
  Transmission Date: 20110411
  Serious: No
  Sender: FDA-Public Use
  Company Number: US-CEPHALON-2010005528

PATIENT
  Sex: Female

DRUGS (5)
  1. FENTORA [Suspect]
     Indication: PAIN
     Route: 002
     Dates: start: 20100901, end: 20101001
  2. FENTANYL CITRATE [Suspect]
     Indication: PAIN
     Route: 002
  3. DURAGESIC-100 [Concomitant]
     Indication: PAIN
  4. DURAGESIC-100 [Concomitant]
  5. OXYCODONE [Concomitant]

REACTIONS (1)
  - DRUG PRESCRIBING ERROR [None]
